FAERS Safety Report 24342348 (Version 1)
Quarter: 2024Q3

REPORT INFORMATION
  Report Type: Spontaneous
  Country: US (occurrence: US)
  Receive Date: 20240920
  Receipt Date: 20240920
  Transmission Date: 20241017
  Serious: No
  Sender: MERCK
  Company Number: US-009507513-2409USA006393

PATIENT
  Sex: Male

DRUGS (2)
  1. KEYTRUDA [Suspect]
     Active Substance: PEMBROLIZUMAB
     Indication: Gastrointestinal carcinoma
     Route: 042
     Dates: end: 20240916
  2. OPDIVO [Suspect]
     Active Substance: NIVOLUMAB

REACTIONS (2)
  - Rash [Unknown]
  - Tinea infection [Unknown]

NARRATIVE: CASE EVENT DATE: 20240916
